FAERS Safety Report 25017340 (Version 3)
Quarter: 2025Q2

REPORT INFORMATION
  Report Type: Spontaneous
  Country: CN (occurrence: CN)
  Receive Date: 20250227
  Receipt Date: 20250504
  Transmission Date: 20250716
  Serious: Yes (Hospitalization, Other)
  Sender: SANOFI AVENTIS
  Company Number: CN-MLMSERVICE-20250217-PI409923-00123-1

PATIENT
  Age: 60 Year
  Sex: Female

DRUGS (10)
  1. DOCETAXEL [Suspect]
     Active Substance: DOCETAXEL
     Indication: Triple negative breast cancer
     Dosage: 100 MG/M2, Q3W
     Dates: start: 20220512, end: 2022
  2. DOCETAXEL [Suspect]
     Active Substance: DOCETAXEL
     Indication: Invasive ductal breast carcinoma
     Dates: start: 2022
  3. DOCETAXEL [Suspect]
     Active Substance: DOCETAXEL
     Indication: Papillary thyroid cancer
  4. CYCLOPHOSPHAMIDE [Suspect]
     Active Substance: CYCLOPHOSPHAMIDE
     Indication: Triple negative breast cancer
     Dosage: 600 MG/M2, Q3W
     Dates: start: 20220512, end: 2022
  5. CYCLOPHOSPHAMIDE [Suspect]
     Active Substance: CYCLOPHOSPHAMIDE
     Indication: Invasive ductal breast carcinoma
  6. CYCLOPHOSPHAMIDE [Suspect]
     Active Substance: CYCLOPHOSPHAMIDE
     Indication: Papillary thyroid cancer
  7. DOXORUBICIN [Suspect]
     Active Substance: DOXORUBICIN
     Indication: Triple negative breast cancer
     Dosage: 60 MG/M2, Q3W
     Dates: start: 20220512, end: 2022
  8. DOXORUBICIN [Suspect]
     Active Substance: DOXORUBICIN
     Indication: Invasive ductal breast carcinoma
  9. DOXORUBICIN [Suspect]
     Active Substance: DOXORUBICIN
     Indication: Papillary thyroid cancer
  10. LEVOTHYROXINE [Concomitant]
     Active Substance: LEVOTHYROXINE
     Indication: Autoimmune thyroiditis
     Route: 048
     Dates: start: 20220318

REACTIONS (12)
  - Dermatomyositis [Recovered/Resolved]
  - Rash [Recovered/Resolved]
  - Face oedema [Recovered/Resolved]
  - Rash erythematous [Recovered/Resolved]
  - Erythema [Recovered/Resolved]
  - Asthenia [Recovered/Resolved]
  - Myalgia [Recovered/Resolved]
  - Dysphagia [Recovered/Resolved]
  - Cough [Recovered/Resolved]
  - Dysphonia [Recovered/Resolved]
  - Heliotrope rash [Recovered/Resolved]
  - Gottron^s papules [Recovered/Resolved]

NARRATIVE: CASE EVENT DATE: 20220916
